FAERS Safety Report 5018546-4 (Version None)
Quarter: 2006Q2

REPORT INFORMATION
  Report Type: 
  Country: None (occurrence: None)
  Receive Date: 20060414
  Receipt Date: 20051219
  Transmission Date: 20061013
  Serious: No
  Sender: FDA-Public Use
  Company Number: 2005SP004463

PATIENT
  Age: 63 Year
  Sex: Male
  Weight: 108.8633 kg

DRUGS (16)
  1. LUNESTA [Suspect]
     Indication: INSOMNIA
     Dosage: 3 MG;HS;ORAL
     Route: 048
     Dates: start: 20050801
  2. LUNESTA [Suspect]
     Indication: SLEEP APNOEA SYNDROME
     Dosage: 3 MG;HS;ORAL
     Route: 048
     Dates: start: 20050801
  3. COZAAR [Concomitant]
  4. DILTIAZEM [Concomitant]
  5. METOLAZONE [Concomitant]
  6. LASIX [Concomitant]
  7. ZETIA [Concomitant]
  8. PRAVACHOL [Concomitant]
  9. DEPAKOTE [Concomitant]
  10. LAMOTRIGINE [Concomitant]
  11. SINGULAIR [Concomitant]
  12. ISOSORBIDE MONONITRATE [Concomitant]
  13. PLAVIX [Concomitant]
  14. SYNTHROID [Concomitant]
  15. ASPIRIN [Concomitant]
  16. INSULIN [Concomitant]

REACTIONS (1)
  - DRUG EFFECT DECREASED [None]
